FAERS Safety Report 6834808-X (Version None)
Quarter: 2010Q3

REPORT INFORMATION
  Report Type: 
  Country: None (occurrence: None)
  Receive Date: 20100712
  Receipt Date: 20070425
  Transmission Date: 20110219
  Serious: No
  Sender: FDA-Public Use
  Company Number: US-PFIZER INC-2007031842

PATIENT
  Sex: Female
  Weight: 60.78 kg

DRUGS (6)
  1. CHANTIX [Suspect]
     Indication: SMOKING CESSATION THERAPY
     Dates: start: 20070401
  2. CALCIUM [Concomitant]
  3. ALL OTHER THERAPEUTIC PRODUCTS [Concomitant]
  4. DRUG, UNSPECIFIED [Concomitant]
     Indication: SLEEP DISORDER
  5. DRUG, UNSPECIFIED [Concomitant]
     Indication: PAIN
  6. DRUG, UNSPECIFIED [Concomitant]
     Indication: ARTHRITIS

REACTIONS (5)
  - BLOOD CALCIUM DECREASED [None]
  - DYSPNOEA [None]
  - FATIGUE [None]
  - HEADACHE [None]
  - MEDICATION ERROR [None]
